FAERS Safety Report 9217144 (Version 1)
Quarter: 2013Q1

REPORT INFORMATION
  Report Type: Spontaneous
  Country: US (occurrence: US)
  Receive Date: 20120827
  Receipt Date: 20120827
  Transmission Date: 20140127
  Serious: No
  Sender: FDA-Public Use
  Company Number: 354012

PATIENT
  Age: 66 Year
  Sex: Female

DRUGS (3)
  1. VICTOZA (LIRAGLUTIDE) SOLUTION FOR INJECTION, 6 MG/ML [Suspect]
     Route: 058
     Dates: start: 201204
  2. METFORMIN (METFORMIN) [Concomitant]
  3. PRANDIN (REPAGLINIDE) TABLET [Concomitant]

REACTIONS (4)
  - Blood pressure increased [None]
  - Abdominal distension [None]
  - Nausea [None]
  - Constipation [None]
